FAERS Safety Report 5176358-5 (Version None)
Quarter: 2006Q4

REPORT INFORMATION
  Report Type: 
  Country: None (occurrence: None)
  Receive Date: 20061207
  Receipt Date: 20061201
  Transmission Date: 20070319
  Serious: Yes (Death, Hospitalization)
  Sender: FDA-Public Use
  Company Number: 2006-145101-NL

PATIENT
  Age: 61 Year
  Sex: Male

DRUGS (8)
  1. DANAPAROID SODIUM [Suspect]
     Dosage: SUBCUTANEOUS
     Route: 058
     Dates: start: 20060531, end: 20060602
  2. HEPARIN CALCIUM [Suspect]
     Dosage: SUBCUTANEOUS
     Route: 058
     Dates: start: 20060505, end: 20060531
  3. RETOROLAC TROMETHAMINE [Concomitant]
  4. RAMIPRIL [Concomitant]
  5. FUROSEMIDE [Concomitant]
  6. SODIUM POLYSTYRENE SULFONATE [Concomitant]
  7. INSULIN [Concomitant]
  8. ACENOCOUMAROL [Concomitant]

REACTIONS (10)
  - ANTI-PLATELET ANTIBODY POSITIVE [None]
  - HAEMODIALYSIS [None]
  - HAEMODYNAMIC INSTABILITY [None]
  - HEPARIN-INDUCED THROMBOCYTOPENIA [None]
  - NEUROPATHIC ARTHROPATHY [None]
  - OSTEITIS [None]
  - PLATELET AGGREGATION ABNORMAL [None]
  - REFUSAL OF TREATMENT BY PATIENT [None]
  - RENAL FAILURE ACUTE [None]
  - SEPTIC SHOCK [None]
